FAERS Safety Report 21140582 (Version 1)
Quarter: 2022Q3

REPORT INFORMATION
  Report Type: Spontaneous
  Country: JP (occurrence: JP)
  Receive Date: 20220728
  Receipt Date: 20220728
  Transmission Date: 20221027
  Serious: Yes (Hospitalization, Other)
  Sender: FDA-Public Use
  Company Number: JP-BAXTER-2022BAX014221

PATIENT
  Age: 9 Decade
  Sex: Male
  Weight: 67 kg

DRUGS (2)
  1. EXTRANEAL [Suspect]
     Active Substance: CALCIUM CHLORIDE\ICODEXTRIN\MAGNESIUM CHLORIDE\SODIUM CHLORIDE\SODIUM LACTATE
     Indication: Peritoneal dialysis
     Dosage: 700 (UNIT NOT REPORTED)
     Route: 033
  2. REGUNEAL LCA [Suspect]
     Active Substance: CALCIUM CHLORIDE\DEXTROSE MONOHYDRATE\HYDROCHLORIC ACID\MAGNESIUM CHLORIDE\SODIUM BICARBONATE\SODIUM
     Indication: Peritoneal dialysis
     Dosage: 1200 (UNIT NOT REPORTED)
     Route: 033

REACTIONS (3)
  - Peritonitis bacterial [Not Recovered/Not Resolved]
  - Peritoneal cloudy effluent [Unknown]
  - Catheter site infection [Unknown]

NARRATIVE: CASE EVENT DATE: 20220707
